FAERS Safety Report 20165719 (Version 1)
Quarter: 2021Q4

REPORT INFORMATION
  Report Type: Spontaneous
  Country: US (occurrence: US)
  Receive Date: 20211209
  Receipt Date: 20211209
  Transmission Date: 20220303
  Serious: Yes (Other)
  Sender: FDA-Public Use
  Company Number: US-MYLANLABS-2021M1090493

PATIENT
  Age: 68 Year
  Sex: Male

DRUGS (2)
  1. MERCAPTOPURINE [Suspect]
     Active Substance: MERCAPTOPURINE
     Indication: Crohn^s disease
     Dosage: UNK
     Route: 065
  2. BALSALAZIDE [Concomitant]
     Active Substance: BALSALAZIDE
     Indication: Crohn^s disease
     Dosage: UNK
     Route: 065

REACTIONS (6)
  - Drug-induced liver injury [Recovering/Resolving]
  - Nodular regenerative hyperplasia [Unknown]
  - Portal hypertension [Unknown]
  - Splenomegaly [Unknown]
  - Ascites [Unknown]
  - Off label use [Unknown]
